FAERS Safety Report 8857625 (Version 1)
Quarter: 2012Q4

REPORT INFORMATION
  Report Type: 
  Country: JP (occurrence: JP)
  Receive Date: 20121024
  Receipt Date: 20121024
  Transmission Date: 20130627
  Serious: Yes (Hospitalization)
  Sender: FDA-Public Use
  Company Number: JP-B.I. PHARMACEUTICALS,INC./RIDGEFIELD-2012-BP-23985NB

PATIENT
  Age: 86 Year
  Sex: Female

DRUGS (10)
  1. PRAZAXA [Suspect]
     Indication: ATRIAL FIBRILLATION
     Dosage: 220 mg
     Route: 048
  2. OMEPRAL [Concomitant]
     Route: 048
  3. LASIX [Concomitant]
     Route: 048
  4. FERROMIA [Concomitant]
     Route: 065
  5. ALOSITOL [Concomitant]
     Route: 065
  6. ARTIST [Concomitant]
     Route: 065
  7. COSPANON [Concomitant]
     Route: 065
  8. LAC-B [Concomitant]
     Route: 065
  9. CINAL [Concomitant]
     Route: 065
  10. POTASSIUM L ASPARTATE K [Concomitant]
     Route: 065

REACTIONS (3)
  - Cholecystitis [Unknown]
  - Intestinal haemorrhage [Unknown]
  - Creatinine renal clearance decreased [Unknown]
